FAERS Safety Report 7272827-2 (Version None)
Quarter: 2011Q1

REPORT INFORMATION
  Report Type: 
  Country: None (occurrence: None)
  Receive Date: 20110203
  Receipt Date: 20110120
  Transmission Date: 20110831
  Serious: Yes (Other)
  Sender: FDA-Public Use
  Company Number: FR-TEVA-263794ISR

PATIENT
  Sex: Female

DRUGS (3)
  1. AZILECT [Suspect]
     Indication: PARKINSON'S DISEASE
     Route: 048
     Dates: start: 20101007, end: 20101021
  2. GABAPENTIN [Concomitant]
  3. MADOPAR (BENSERAZIDE - LEVODOPA) [Concomitant]
     Indication: PARKINSON'S DISEASE

REACTIONS (2)
  - VASCULITIS [None]
  - TOXIC SKIN ERUPTION [None]
